FAERS Safety Report 15246636 (Version 1)
Quarter: 2018Q3

REPORT INFORMATION
  Report Type: Spontaneous
  Country: US (occurrence: US)
  Receive Date: 20180713
  Receipt Date: 20180713
  Transmission Date: 20181010
  Serious: Yes (Other)
  Sender: FDA-Public Use
  Company Number: None

PATIENT
  Sex: Female
  Weight: 72 kg

DRUGS (3)
  1. AVONEX [Suspect]
     Active Substance: INTERFERON BETA-1A
     Indication: RELAPSING-REMITTING MULTIPLE SCLEROSIS
  2. AUBAGIO [Suspect]
     Active Substance: TERIFLUNOMIDE
  3. AVONEX [Suspect]
     Active Substance: INTERFERON BETA-1A
     Indication: OPTIC NEURITIS

REACTIONS (4)
  - Skin disorder [None]
  - Loose tooth [None]
  - Tooth fracture [None]
  - Tooth disorder [None]
